FAERS Safety Report 7556625-8 (Version None)
Quarter: 2011Q2

REPORT INFORMATION
  Report Type: 
  Country: None (occurrence: None)
  Receive Date: 20110616
  Receipt Date: 20110616
  Transmission Date: 20111010
  Serious: Yes (Hospitalization)
  Sender: FDA-Public Use
  Company Number: None

PATIENT
  Sex: Female
  Weight: 111.5 kg

DRUGS (4)
  1. PACLITAXEL [Suspect]
     Dosage: 350 MG
  2. NEULASTA [Suspect]
     Dosage: 6 MG
  3. CARBOPLATIN [Suspect]
     Dosage: 271 MG
  4. CISPLATIN [Suspect]
     Dosage: 100 MG

REACTIONS (3)
  - OROPHARYNGEAL PAIN [None]
  - NEUTROPHIL COUNT DECREASED [None]
  - VIRAL INFECTION [None]
